FAERS Safety Report 17546521 (Version 1)
Quarter: 2020Q1

REPORT INFORMATION
  Report Type: Spontaneous
  Country: FR (occurrence: FR)
  Receive Date: 20200316
  Receipt Date: 20200316
  Transmission Date: 20200409
  Serious: Yes (Hospitalization)
  Sender: FDA-Public Use
  Company Number: FR-009507513-2003FRA003180

PATIENT
  Age: 70 Year
  Sex: Male
  Weight: 47 kg

DRUGS (6)
  1. NEXAVAR [Suspect]
     Active Substance: SORAFENIB
     Indication: HEPATOCELLULAR CARCINOMA
     Dosage: 800 MILLIGRAM, QD
     Route: 048
     Dates: start: 20200204
  2. KEYTRUDA [Suspect]
     Active Substance: PEMBROLIZUMAB
     Indication: LUNG ADENOCARCINOMA
     Dosage: 200 MILLIGRAM, CYCLICAL
     Route: 042
     Dates: start: 20191126, end: 20200128
  3. JANUMET [Concomitant]
     Active Substance: METFORMIN HYDROCHLORIDE\SITAGLIPTIN PHOSPHATE
     Indication: TYPE 2 DIABETES MELLITUS
     Dosage: 1 DOSAGE FORM, QD (1-0-0)
     Route: 048
     Dates: start: 201209
  4. IMODIUM [Concomitant]
     Active Substance: LOPERAMIDE HYDROCHLORIDE
     Indication: DIARRHOEA
     Dosage: 1 DOSAGE FORM, PRN (AS NECESSARY)
     Route: 048
     Dates: start: 20200204
  5. ENALAPRIL MALEATE. [Concomitant]
     Active Substance: ENALAPRIL MALEATE
     Indication: HYPERTENSION
     Dosage: 2.5 MILLIGRAM, QD (5MG; 1/2-0-0)
     Route: 048
  6. DEXERYL CREAM [Concomitant]
     Active Substance: GLYCERIN\MINERAL OIL\PETROLATUM
     Indication: DRY SKIN
     Dosage: 2 DOSAGE FORM, QD (1 APPLICATION; MORNING AND EVENING)
     Route: 003
     Dates: start: 20200204

REACTIONS (2)
  - Mucosal inflammation [Not Recovered/Not Resolved]
  - Rash maculo-papular [Not Recovered/Not Resolved]

NARRATIVE: CASE EVENT DATE: 20200216
